FAERS Safety Report 15311752 (Version 1)
Quarter: 2018Q3

REPORT INFORMATION
  Report Type: Spontaneous
  Country: DK (occurrence: DK)
  Receive Date: 20180823
  Receipt Date: 20180823
  Transmission Date: 20181010
  Serious: Yes (Hospitalization)
  Sender: FDA-Public Use
  Company Number: PHHY2018DK075013

PATIENT
  Age: 87 Year
  Sex: Female

DRUGS (11)
  1. SPARKAL [Suspect]
     Active Substance: AMILORIDE HYDROCHLORIDE
     Indication: DIURETIC THERAPY
     Dosage: 1 DF, QD (STARTDATO UKENDT, MEN F?R 2016 )
     Route: 048
  2. AMOXICILLIN/CLAVULANIC ACID [Concomitant]
     Active Substance: AMOXICILLIN\CLAVULANIC ACID
     Indication: PRODUCT USED FOR UNKNOWN INDICATION
     Dosage: UNK
     Route: 065
  3. ONDANSETRON HAMELN [Concomitant]
     Indication: PRODUCT USED FOR UNKNOWN INDICATION
     Dosage: UNK
     Route: 065
  4. TOILAX [Concomitant]
     Active Substance: BISACODYL
     Indication: CONSTIPATION
     Dosage: 10 MG, QD(STARTDATO UKENDT, MEN F?R 2017)
     Route: 048
  5. KALIUMKLORID ORIFARM [Concomitant]
     Dosage: 750 MG, QD
     Route: 048
     Dates: start: 20180628
  6. SPARKAL [Suspect]
     Active Substance: AMILORIDE HYDROCHLORIDE
     Dosage: 1 DF, QD (STARTDATO UKENDT, MEN F?R 2016 )
     Route: 048
     Dates: start: 20180625
  7. RAMIPRIL. [Concomitant]
     Active Substance: RAMIPRIL
     Indication: HYPERTENSION
     Dosage: 5 MG, QD
     Route: 048
  8. AMLODIPINE [Concomitant]
     Active Substance: AMLODIPINE BESYLATE
     Indication: HYPERTENSION
     Dosage: 10 MG, QD (STARTDATO UKENDT, MEN F?R 2016)
     Route: 048
  9. PARACETAMOL [Concomitant]
     Active Substance: ACETAMINOPHEN
     Indication: PAIN
     Dosage: 2 DF, PRN
     Route: 048
  10. VITAMIN D [Concomitant]
     Active Substance: CHOLECALCIFEROL
     Indication: VITAMIN SUPPLEMENTATION
     Dosage: 2 DF, QD
     Route: 048
     Dates: start: 20180621
  11. KALIUMKLORID ORIFARM [Concomitant]
     Indication: MINERAL SUPPLEMENTATION
     Dosage: 750 MG, QD
     Route: 048

REACTIONS (2)
  - Hyperkalaemia [Recovered/Resolved]
  - Blood creatine increased [Unknown]

NARRATIVE: CASE EVENT DATE: 201806
